FAERS Safety Report 22981545 (Version 3)
Quarter: 2023Q4

REPORT INFORMATION
  Report Type: Spontaneous
  Country: JP (occurrence: JP)
  Receive Date: 20230925
  Receipt Date: 20231031
  Transmission Date: 20240110
  Serious: Yes (Other)
  Sender: FDA-Public Use
  Company Number: JP-GLAXOSMITHKLINE-JP2023JPN129033

PATIENT

DRUGS (2)
  1. SUMATRIPTAN SUCCINATE [Suspect]
     Active Substance: SUMATRIPTAN SUCCINATE
     Indication: Migraine
     Dosage: UNK
  2. DICLOFENAC SODIUM SUPPOSITORY [Concomitant]
     Indication: Headache
     Dosage: UNK

REACTIONS (3)
  - Cerebral vasoconstriction [Unknown]
  - Headache [Unknown]
  - Thunderclap headache [Unknown]
